FAERS Safety Report 12382330 (Version 1)
Quarter: 2016Q2

REPORT INFORMATION
  Report Type: Spontaneous
  Country: US (occurrence: US)
  Receive Date: 20160518
  Receipt Date: 20160518
  Transmission Date: 20160815
  Serious: No
  Sender: FDA-Public Use
  Company Number: US-PERRIGO-15US006911

PATIENT
  Age: 59 Year
  Sex: Female
  Weight: 55.33 kg

DRUGS (3)
  1. MICONAZOLE 3 COMBINATION PACK [Suspect]
     Active Substance: MICONAZOLE NITRATE
     Indication: VULVOVAGINAL MYCOTIC INFECTION
     Dosage: 200 MG AT 1200 AND 100 MG AT 2330
     Route: 067
     Dates: start: 20150629, end: 20150629
  2. PROGESTERONE. [Concomitant]
     Active Substance: PROGESTERONE
     Indication: PROGESTERONE DECREASED
     Dosage: UNKNOWN, UNKNOWN
     Route: 065
     Dates: start: 201210
  3. PROGESTERONE. [Concomitant]
     Active Substance: PROGESTERONE
     Indication: MIGRAINE

REACTIONS (5)
  - Abdominal pain upper [Recovered/Resolved]
  - Vaginal haemorrhage [Recovered/Resolved]
  - Incorrect dose administered [Recovered/Resolved]
  - Inappropriate schedule of drug administration [Recovered/Resolved]
  - Wrong technique in product usage process [Recovered/Resolved]

NARRATIVE: CASE EVENT DATE: 20150629
